FAERS Safety Report 24705238 (Version 1)
Quarter: 2024Q4

REPORT INFORMATION
  Report Type: Spontaneous
  Country: FR (occurrence: FR)
  Receive Date: 20241206
  Receipt Date: 20241206
  Transmission Date: 20250114
  Serious: Yes (Life-Threatening, Hospitalization)
  Sender: ACCORD
  Company Number: None

PATIENT
  Age: 72 Year
  Sex: Male
  Weight: 82.5 kg

DRUGS (12)
  1. FUROSEMIDE [Interacting]
     Active Substance: FUROSEMIDE
     Indication: Hypertension
     Dates: end: 20241008
  2. RAMIPRIL [Interacting]
     Active Substance: RAMIPRIL
     Indication: Hypertension
     Dates: start: 20240910, end: 20241001
  3. SPIRONOLACTONE [Interacting]
     Active Substance: SPIRONOLACTONE
     Indication: Product used for unknown indication
     Dates: end: 20241008
  4. DAPAGLIFLOZIN [Interacting]
     Active Substance: DAPAGLIFLOZIN
     Indication: Product used for unknown indication
     Dosage: STRENTH: 10 MG
     Dates: end: 20241008
  5. ATORVASTATIN [Concomitant]
     Active Substance: ATORVASTATIN
     Dates: end: 20241008
  6. SITAGLIPTIN [Concomitant]
     Active Substance: SITAGLIPTIN
     Dates: end: 20241008
  7. ELIQUIS [Concomitant]
     Active Substance: APIXABAN
     Dosage: STRENGTH: 5MG
     Dates: end: 20241008
  8. AMIODARONE [Concomitant]
     Active Substance: AMIODARONE
     Dates: end: 20241008
  9. LANSOPRAZOLE [Concomitant]
     Active Substance: LANSOPRAZOLE
     Dates: end: 20241008
  10. ALBUTEROL [Concomitant]
     Active Substance: ALBUTEROL
     Dates: end: 20241008
  11. FLUTICASONE FUROATE\UMECLIDINIUM BROMIDE\VILANTEROL TRIFENATATE [Concomitant]
     Active Substance: FLUTICASONE FUROATE\UMECLIDINIUM BROMIDE\VILANTEROL TRIFENATATE
     Dosage: 92 MG/55 MG/22 MG, POWDER FOR INHALATION IN SINGLE-DOSE CONTAINER
     Dates: end: 20241008
  12. RAMIPRIL [Interacting]
     Active Substance: RAMIPRIL
     Indication: Hypertension
     Dates: start: 20241002, end: 20241008

REACTIONS (3)
  - Hypotension [Recovering/Resolving]
  - Hypovolaemic shock [Recovered/Resolved]
  - Drug interaction [Recovered/Resolved]

NARRATIVE: CASE EVENT DATE: 20241008
